FAERS Safety Report 9509904 (Version 2)
Quarter: 2013Q3

REPORT INFORMATION
  Report Type: Spontaneous
  Country: US (occurrence: US)
  Receive Date: 20130909
  Receipt Date: 20130909
  Transmission Date: 20140515
  Serious: Yes (Hospitalization)
  Sender: FDA-Public Use
  Company Number: US-BRISTOL-MYERS SQUIBB COMPANY-18809525

PATIENT
  Age: 14 Year
  Sex: Female

DRUGS (2)
  1. ABILIFY TABS [Suspect]
     Indication: DEPRESSION
     Dosage: DOSAGE:60TABS
     Dates: start: 20130411
  2. CITALOPRAM [Concomitant]

REACTIONS (1)
  - Intentional overdose [Unknown]
